FAERS Safety Report 7243028-9 (Version None)
Quarter: 2011Q1

REPORT INFORMATION
  Report Type: 
  Country: None (occurrence: None)
  Receive Date: 20110125
  Receipt Date: 20100916
  Transmission Date: 20110831
  Serious: No
  Sender: FDA-Public Use
  Company Number: US-AMGEN-KDL438689

PATIENT
  Sex: Female

DRUGS (4)
  1. PROLIA [Suspect]
     Indication: OSTEOPOROSIS POSTMENOPAUSAL
     Dosage: 60 MG, Q6MO
     Dates: start: 20100713
  2. LEVOTHYROXINE SODIUM [Concomitant]
     Dosage: 150 A?G, UNK
  3. VALSARTAN [Concomitant]
     Dosage: 160 MG, UNK
  4. OMEPRAZOLE [Concomitant]

REACTIONS (3)
  - ABDOMINAL PAIN UPPER [None]
  - FLATULENCE [None]
  - GASTROOESOPHAGEAL REFLUX DISEASE [None]
